FAERS Safety Report 9470718 (Version 1)
Quarter: 2013Q3

REPORT INFORMATION
  Report Type: Spontaneous
  Country: US (occurrence: None)
  Receive Date: 20130820
  Receipt Date: 20130820
  Transmission Date: 20140515
  Serious: Yes (Other)
  Sender: FDA-Public Use
  Company Number: None

PATIENT
  Age: 81 Year
  Sex: Female
  Weight: 58.97 kg

DRUGS (7)
  1. TOVIAZ [Suspect]
     Indication: HYPERTONIC BLADDER
     Route: 048
     Dates: start: 20130716, end: 20130725
  2. VERAPAMIL [Concomitant]
  3. PANTOPRAZOLE [Concomitant]
  4. GENTAMICIN [Concomitant]
  5. E 400 IU [Concomitant]
  6. VITAMIN D 3 200 IU [Concomitant]
  7. BIOTIN [Concomitant]

REACTIONS (8)
  - Dry mouth [None]
  - Oropharyngeal pain [None]
  - Vision blurred [None]
  - Swollen tongue [None]
  - Lip swelling [None]
  - Swelling [None]
  - Haematoma [None]
  - Ocular hyperaemia [None]
